FAERS Safety Report 5674319-0 (Version None)
Quarter: 2008Q1

REPORT INFORMATION
  Report Type: 
  Country: None (occurrence: None)
  Receive Date: 20080320
  Receipt Date: 20080320
  Transmission Date: 20080703
  Serious: Yes (Other)
  Sender: FDA-Public Use
  Company Number: None

PATIENT
  Age: 28 Year
  Sex: Female
  Weight: 77.5 kg

DRUGS (2)
  1. HEPARIN [Suspect]
     Indication: HAEMODIALYSIS
     Dosage: 2000 UNIT BOLUS HEMODIALYSIS
     Dates: start: 20071115, end: 20080201
  2. HEPARIN [Suspect]
     Indication: HAEMODIALYSIS
     Dosage: 1000 UNIT/HR CONT INFUSION HEMODIALYSIS
     Dates: start: 20071115, end: 20080201

REACTIONS (7)
  - ABDOMINAL PAIN [None]
  - DEPRESSED LEVEL OF CONSCIOUSNESS [None]
  - EYELID OEDEMA [None]
  - LIP SWELLING [None]
  - MALAISE [None]
  - NAUSEA [None]
  - VOMITING [None]
